FAERS Safety Report 6678039-5 (Version None)
Quarter: 2010Q2

REPORT INFORMATION
  Report Type: 
  Country: None (occurrence: None)
  Receive Date: 20100412
  Receipt Date: 20100330
  Transmission Date: 20101027
  Serious: Yes (Other)
  Sender: FDA-Public Use
  Company Number: PHHY2010US08570

PATIENT
  Sex: Female

DRUGS (4)
  1. RECLAST [Suspect]
     Dosage: 5 MG
     Route: 042
     Dates: start: 20080601
  2. RECLAST [Suspect]
     Dosage: 5 MG
     Route: 042
     Dates: start: 20090801
  3. FOSAMAX [Concomitant]
     Dosage: UNK
     Route: 048
     Dates: start: 20050101
  4. BONIVA [Concomitant]
     Dosage: UNK
     Route: 048
     Dates: start: 20070101

REACTIONS (5)
  - IMPAIRED HEALING [None]
  - ORAL SURGERY [None]
  - OSTEONECROSIS [None]
  - STOMATITIS [None]
  - SWELLING [None]
